FAERS Safety Report 16810450 (Version 1)
Quarter: 2019Q3

REPORT INFORMATION
  Report Type: Spontaneous
  Country: ID (occurrence: ID)
  Receive Date: 20190916
  Receipt Date: 20190916
  Transmission Date: 20191005
  Serious: Yes (Other)
  Sender: FDA-Public Use
  Company Number: ID-BAYER-2019-166018

PATIENT
  Age: 52 Year
  Sex: Male

DRUGS (1)
  1. NEXAVAR [Suspect]
     Active Substance: SORAFENIB
     Indication: HEPATOCELLULAR CARCINOMA
     Dosage: 2X400MG
     Route: 048
     Dates: start: 20190801

REACTIONS (3)
  - Alpha 1 foetoprotein increased [None]
  - Blood albumin decreased [None]
  - Blister [None]

NARRATIVE: CASE EVENT DATE: 201908
